FAERS Safety Report 5152937-6 (Version None)
Quarter: 2006Q4

REPORT INFORMATION
  Report Type: 
  Country: None (occurrence: None)
  Receive Date: 20061117
  Receipt Date: 20060807
  Transmission Date: 20070319
  Serious: Yes (Disabling, Other)
  Sender: FDA-Public Use
  Company Number: GBWYE582608AUG06

PATIENT
  Sex: Male
  Weight: 127.9 kg

DRUGS (6)
  1. ENBREL [Suspect]
     Indication: RHEUMATOID ARTHRITIS
     Route: 058
     Dates: start: 20030601
  2. ACRIVASTINE [Concomitant]
     Dosage: UNKNOWN
     Route: 065
  3. SIMVASTATIN [Concomitant]
     Dosage: 40MG AT NIGHT, FREQUENCY UNKNOWN
     Route: 048
  4. ACETAMINOPHEN W/ CODEINE [Concomitant]
     Dosage: 30/500 AS NEEDED
     Route: 048
  5. CETIRIZINE HCL [Concomitant]
     Dosage: UNKNOWN
  6. AMLODIPINE [Concomitant]
     Route: 048

REACTIONS (4)
  - HYPERSENSITIVITY [None]
  - OEDEMA PERIPHERAL [None]
  - PRURITUS [None]
  - RASH ERYTHEMATOUS [None]
